FAERS Safety Report 22005017 (Version 3)
Quarter: 2023Q1

REPORT INFORMATION
  Report Type: Report from Study
  Country: KR (occurrence: None)
  Receive Date: 20230217
  Receipt Date: 20230313
  Transmission Date: 20230418
  Serious: Yes (Hospitalization)
  Sender: FDA-Public Use
  Company Number: KR-ROCHE-3285844

PATIENT
  Age: 64 Year
  Sex: Male
  Weight: 63.8 kg

DRUGS (18)
  1. TIRAGOLUMAB [Suspect]
     Active Substance: TIRAGOLUMAB
     Indication: Oesophageal squamous cell carcinoma metastatic
     Dosage: MOST RECENT DOSE OF STUDY DRUG PRIOR TO AE/SAE WAS GIVEN ON 25/JAN/2023.?EVERY 3 WEEKS (Q3W) ON DAY
     Route: 042
     Dates: start: 20210225
  2. ATEZOLIZUMAB [Suspect]
     Active Substance: ATEZOLIZUMAB
     Indication: Oesophageal squamous cell carcinoma metastatic
     Dosage: MOST RECENT DOSE OF STUDY DRUG PRIOR TO AE/SAE WAS GIVEN ON 25/JAN/2023.?EVERY 3 WEEKS (Q3W) ON DAY
     Route: 041
     Dates: start: 20210225
  3. PACLITAXEL [Suspect]
     Active Substance: PACLITAXEL
     Indication: Oesophageal squamous cell carcinoma metastatic
     Dosage: MOST RECENT DOSE OF STUDY DRUG PRIOR TO AE/SAE OF 287 MG WAS GIVEN ON 11/JUN/2021
     Route: 042
     Dates: start: 20210225
  4. CISPLATIN [Suspect]
     Active Substance: CISPLATIN
     Indication: Oesophageal squamous cell carcinoma metastatic
     Dosage: MOST RECENT DOSE OF STUDY DRUG PRIOR TO AE/SAE OF 98.4 MG WAS GIVEN ON 11/JUN/2021
     Route: 042
     Dates: start: 20210226
  5. LACOSAMIDE [Concomitant]
     Active Substance: LACOSAMIDE
     Route: 048
     Dates: start: 20220427
  6. LANSOPRAZOLE [Concomitant]
     Active Substance: LANSOPRAZOLE
     Route: 048
     Dates: start: 20220505
  7. MEGESTROL [Concomitant]
     Active Substance: MEGESTROL
     Indication: Decreased appetite
     Route: 048
     Dates: start: 20220518
  8. MAGNESIUM OXIDE [Concomitant]
     Active Substance: MAGNESIUM OXIDE
     Route: 048
     Dates: start: 20220518
  9. MEDILAC DS [Concomitant]
     Route: 048
     Dates: start: 20220518
  10. SACCHAROMYCES CEREVISIAE [Concomitant]
     Active Substance: SACCHAROMYCES CEREVISIAE
     Route: 048
     Dates: start: 20220622
  11. HYDROCORTISONE [Concomitant]
     Active Substance: HYDROCORTISONE
     Indication: Pruritus
     Route: 062
     Dates: start: 20220622
  12. HYDROCORTISONE [Concomitant]
     Active Substance: HYDROCORTISONE
     Route: 048
     Dates: start: 20221207
  13. LEVETIRACETAM [Concomitant]
     Active Substance: LEVETIRACETAM
     Route: 048
     Dates: start: 20220914
  14. MUCOPECT TAB [Concomitant]
     Indication: Productive cough
     Route: 048
     Dates: start: 20220928
  15. FLUOROMETHOLONE [Concomitant]
     Active Substance: FLUOROMETHOLONE
     Indication: Dacryostenosis acquired
     Route: 047
     Dates: start: 20221101
  16. FENTANYL [Concomitant]
     Active Substance: FENTANYL
     Indication: Pain
     Route: 060
     Dates: start: 20221228
  17. CETAMADOL [Concomitant]
     Indication: Pain
     Route: 048
     Dates: start: 20230125
  18. PREDNISOLONE [Concomitant]
     Active Substance: PREDNISOLONE
     Indication: Colitis
     Route: 048
     Dates: start: 20230213, end: 20230307

REACTIONS (1)
  - Diarrhoea [Recovered/Resolved]

NARRATIVE: CASE EVENT DATE: 20230204
